FAERS Safety Report 11442030 (Version 3)
Quarter: 2015Q3

REPORT INFORMATION
  Report Type: Report from Study
  Country: ES (occurrence: ES)
  Receive Date: 20150901
  Receipt Date: 20150911
  Transmission Date: 20151125
  Serious: Yes (Life-Threatening, Hospitalization)
  Sender: FDA-Public Use
  Company Number: ES-ROCHE-1626977

PATIENT
  Age: 82 Year
  Sex: Female
  Weight: 71.5 kg

DRUGS (11)
  1. LANIRAPID [Concomitant]
     Active Substance: METILDIGOXIN
     Route: 048
     Dates: start: 20150717
  2. URBASON [Concomitant]
     Active Substance: METHYLPREDNISOLONE
     Indication: PROPHYLAXIS
     Route: 042
     Dates: start: 20150825, end: 20150825
  3. LORAZEPAM. [Concomitant]
     Active Substance: LORAZEPAM
     Indication: ANXIETY
     Route: 048
     Dates: start: 201406
  4. EXFORGE [Concomitant]
     Active Substance: AMLODIPINE BESYLATE\VALSARTAN
     Dosage: 10/160MG
     Route: 048
     Dates: start: 201401
  5. DEXAMETASONA [Concomitant]
     Active Substance: DEXAMETHASONE
     Indication: PROPHYLAXIS
     Route: 042
     Dates: start: 20150825, end: 20150825
  6. SINTROM [Concomitant]
     Active Substance: ACENOCOUMAROL
     Route: 048
     Dates: start: 201411
  7. PARACETAMOL [Concomitant]
     Active Substance: ACETAMINOPHEN
     Indication: PROPHYLAXIS
     Route: 042
     Dates: start: 20150825, end: 20150825
  8. OBINUTUZUMAB [Suspect]
     Active Substance: OBINUTUZUMAB
     Indication: CHRONIC LYMPHOCYTIC LEUKAEMIA
     Dosage: DATE  OF LAST DOSE PRIOR TO SAE 25/AUG/2015?C1D1
     Route: 042
     Dates: start: 20150825, end: 20150825
  9. TRANGOREX [Concomitant]
     Active Substance: AMIODARONE HYDROCHLORIDE
     Route: 065
     Dates: start: 201406, end: 201503
  10. SINTROM [Concomitant]
     Active Substance: ACENOCOUMAROL
     Route: 048
     Dates: start: 201111, end: 201211
  11. POLARAMINE [Concomitant]
     Active Substance: DEXCHLORPHENIRAMINE MALEATE
     Indication: PROPHYLAXIS
     Route: 042
     Dates: start: 20150825, end: 20150825

REACTIONS (3)
  - Atrial fibrillation [Recovered/Resolved]
  - Cardiac failure [Recovered/Resolved]
  - Tumour lysis syndrome [Recovered/Resolved]

NARRATIVE: CASE EVENT DATE: 20150825
